FAERS Safety Report 8261456 (Version 2)
Quarter: 2020Q3

REPORT INFORMATION
  Report Type: Report from Study
  Country: ZA (occurrence: ZA)
  Receive Date: 20111123
  Receipt Date: 20120518
  Transmission Date: 20201104
  Serious: Yes (Hospitalization, Other)
  Sender: FDA-Public Use
  Company Number: ZA-JNJFOC-20101203111

PATIENT
  Age: 64 Year
  Sex: Male
  Weight: 92 kg

DRUGS (3)
  1. GOLIMUMAB [Suspect]
     Active Substance: GOLIMUMAB
     Indication: COLITIS ULCERATIVE
     Route: 058
     Dates: start: 20100608
  2. GOLIMUMAB [Suspect]
     Active Substance: GOLIMUMAB
     Route: 058
     Dates: start: 20100720, end: 20100720
  3. PENTASA [Concomitant]
     Active Substance: MESALAMINE
     Indication: COLITIS ULCERATIVE

REACTIONS (1)
  - Brain abscess [Recovered/Resolved]

NARRATIVE: CASE EVENT DATE: 20101124
